FAERS Safety Report 8933318 (Version 1)
Quarter: 2012Q4

REPORT INFORMATION
  Report Type: 
  Country: US (occurrence: US)
  Receive Date: 20121129
  Receipt Date: 20121129
  Transmission Date: 20130627
  Serious: Yes (Hospitalization, Other)
  Sender: FDA-Public Use
  Company Number: PHEH2012US023161

PATIENT
  Sex: Male
  Weight: 117.91 kg

DRUGS (1)
  1. SANDOSTATIN LAR DEPOT [Suspect]
     Indication: METASTATIC CARCINOID TUMOUR
     Dosage: 40 mg, once in a month
     Route: 030

REACTIONS (15)
  - Localised intraabdominal fluid collection [Unknown]
  - Ileus [Unknown]
  - Tumour lysis syndrome [Unknown]
  - Hepatic pain [Unknown]
  - Hyperhidrosis [Unknown]
  - Malaise [Unknown]
  - Hypertension [Unknown]
  - Decreased appetite [Unknown]
  - Carcinoid syndrome [Unknown]
  - Flushing [Unknown]
  - Diarrhoea [Unknown]
  - Constipation [Unknown]
  - Nausea [Unknown]
  - Vomiting [Unknown]
  - Fatigue [Unknown]
